FAERS Safety Report 10691534 (Version 8)
Quarter: 2015Q4

REPORT INFORMATION
  Report Type: Spontaneous
  Country: US (occurrence: US)
  Receive Date: 20150105
  Receipt Date: 20151229
  Transmission Date: 20160304
  Serious: Yes (Hospitalization)
  Sender: FDA-Public Use
  Company Number: US-PFIZER INC-2014337487

PATIENT
  Age: 63 Year
  Sex: Male

DRUGS (18)
  1. FUROSEMIDE. [Concomitant]
     Active Substance: FUROSEMIDE
     Dosage: UNK
     Dates: start: 201001
  2. TRIMETHOPRIM. [Concomitant]
     Active Substance: TRIMETHOPRIM
     Dosage: UNK
     Dates: start: 20141107, end: 20150210
  3. ATORVASTATIN [Concomitant]
     Active Substance: ATORVASTATIN
     Dosage: 10 MG, DAILY
     Dates: start: 2006
  4. DIGOXIN. [Concomitant]
     Active Substance: DIGOXIN
     Indication: CARDIAC FAILURE
     Dosage: 0.125 MG, 1X/DAY
     Dates: start: 20141103
  5. ENALAPRIL [Suspect]
     Active Substance: ENALAPRIL
     Indication: LEFT VENTRICULAR DYSFUNCTION
  6. ENALAPRIL [Suspect]
     Active Substance: ENALAPRIL
     Indication: PULMONARY HYPERTENSION
  7. WARFARIN [Suspect]
     Active Substance: WARFARIN
     Dosage: 4 MG, ONCE DAILY
     Dates: start: 201001
  8. FUROSEMIDE. [Concomitant]
     Active Substance: FUROSEMIDE
     Indication: DIURETIC THERAPY
     Dosage: 80 MG, DAILY
     Dates: start: 2006
  9. AMIODARONE HCL [Suspect]
     Active Substance: AMIODARONE HYDROCHLORIDE
     Indication: EBSTEIN^S ANOMALY
     Dosage: 100 MG, 1X/DAY
     Dates: start: 2008
  10. ADVAIR HFA [Concomitant]
     Active Substance: FLUTICASONE PROPIONATE\SALMETEROL XINAFOATE
     Dosage: ^500/50^, 2X/DAY
     Dates: start: 2006
  11. REVATIO [Suspect]
     Active Substance: SILDENAFIL CITRATE
     Indication: PULMONARY ARTERIAL HYPERTENSION
     Dosage: 20 MG, TWICE A DAY
     Dates: start: 20121213
  12. ENALAPRIL [Suspect]
     Active Substance: ENALAPRIL
     Indication: BLOOD PRESSURE INCREASED
     Dosage: 2.5 MG, ONCE A DAY
     Dates: start: 20121103
  13. WARFARIN [Suspect]
     Active Substance: WARFARIN
     Indication: CEREBROVASCULAR ACCIDENT
     Dosage: 2 MG, ONCE DAILY
     Dates: start: 201001
  14. AMIODARONE HCL [Suspect]
     Active Substance: AMIODARONE HYDROCHLORIDE
     Indication: HEART RATE IRREGULAR
  15. LEVOTHYROXINE. [Concomitant]
     Active Substance: LEVOTHYROXINE
     Dosage: 0.1 MG, DAILY
     Dates: start: 2000
  16. SPIRIVA [Concomitant]
     Active Substance: TIOTROPIUM BROMIDE MONOHYDRATE
     Dosage: 18 ?G, 1X/DAY
     Dates: start: 2006
  17. ENALAPRIL [Suspect]
     Active Substance: ENALAPRIL
     Indication: CARDIAC DISORDER
  18. WARFARIN [Suspect]
     Active Substance: WARFARIN
     Indication: ANTICOAGULANT THERAPY
     Dosage: 4 MG, 1X/DAY
     Dates: start: 2008

REACTIONS (3)
  - Cerebrovascular accident [Recovered/Resolved]
  - Pneumonia [Recovered/Resolved]
  - Prostatomegaly [Recovered/Resolved]

NARRATIVE: CASE EVENT DATE: 20121213
